FAERS Safety Report 4660879-5 (Version None)
Quarter: 2005Q2

REPORT INFORMATION
  Report Type: 
  Country: None (occurrence: None)
  Receive Date: 20050427
  Receipt Date: 20041026
  Transmission Date: 20051028
  Serious: Yes (Other)
  Sender: FDA-Public Use
  Company Number: NSADSS2002010875

PATIENT
  Age: 33 Year
  Sex: Female
  Weight: 77.5651 kg

DRUGS (2)
  1. ULTRAM [Suspect]
     Indication: PAIN
     Dosage: 50 MG, 4 IN 1 DAY, ORAL
     Route: 048
  2. ZOLOFT [Suspect]
     Indication: DRUG USE FOR UNKNOWN INDICATION
     Dosage: 200 MG, 1 IN 1 DAY

REACTIONS (1)
  - CONVULSION [None]
